FAERS Safety Report 15474566 (Version 1)
Quarter: 2018Q4

REPORT INFORMATION
  Report Type: Spontaneous
  Country: IS (occurrence: IS)
  Receive Date: 20181008
  Receipt Date: 20181008
  Transmission Date: 20190205
  Serious: Yes (Hospitalization)
  Sender: FDA-Public Use
  Company Number: IS-MYLANLABS-2018M1071858

PATIENT
  Age: 67 Year
  Sex: Male

DRUGS (5)
  1. BICALUTAMIDE. [Suspect]
     Active Substance: BICALUTAMIDE
     Route: 065
  2. GOSERELIN [Concomitant]
     Active Substance: GOSERELIN
     Indication: PRODUCT USED FOR UNKNOWN INDICATION
     Route: 058
  3. ENALAPRIL [Concomitant]
     Active Substance: ENALAPRIL
     Indication: HYPERTENSION
     Route: 065
  4. BICALUTAMIDE. [Suspect]
     Active Substance: BICALUTAMIDE
     Indication: PROSTATE CANCER
     Route: 065
  5. ANGELICA ARCHANGELICA [Concomitant]
     Indication: SUPPLEMENTATION THERAPY
     Dosage: AANGELICA ROOT
     Route: 065

REACTIONS (2)
  - Arthralgia [Recovered/Resolved]
  - Liver injury [Recovering/Resolving]
